FAERS Safety Report 6915317-6 (Version None)
Quarter: 2010Q3

REPORT INFORMATION
  Report Type: 
  Country: None (occurrence: None)
  Receive Date: 20100806
  Receipt Date: 20100806
  Transmission Date: 20110219
  Serious: Yes (Other)
  Sender: FDA-Public Use
  Company Number: None

PATIENT
  Age: 32 Year
  Sex: Male
  Weight: 87.3 kg

DRUGS (3)
  1. VENLAFAXINE HCL [Suspect]
     Indication: DEPRESSION
     Dosage: 75MG 1 X DAY ORAL
     Route: 048
     Dates: start: 20100802, end: 20100805
  2. VENLAFAXINE HCL [Suspect]
     Indication: SOCIAL PHOBIA
     Dosage: 75MG 1 X DAY ORAL
     Route: 048
     Dates: start: 20100802, end: 20100805
  3. EFFEXOR XR [Suspect]

REACTIONS (9)
  - ANXIETY [None]
  - DIZZINESS [None]
  - FEELING HOT [None]
  - HEADACHE [None]
  - LOSS OF CONSCIOUSNESS [None]
  - MIGRAINE [None]
  - PALLOR [None]
  - PARAESTHESIA [None]
  - VOMITING [None]
